FAERS Safety Report 6309067-7 (Version None)
Quarter: 2009Q3

REPORT INFORMATION
  Report Type: 
  Country: None (occurrence: None)
  Receive Date: 20090814
  Receipt Date: 20090806
  Transmission Date: 20100115
  Serious: Yes (Hospitalization)
  Sender: FDA-Public Use
  Company Number: US-BIOGENIDEC-2009BI025117

PATIENT
  Age: 66 Year
  Sex: Female

DRUGS (2)
  1. AVONEX [Suspect]
     Indication: MULTIPLE SCLEROSIS
     Route: 030
     Dates: start: 20080101
  2. CHEMOTHERAPY NOS [Concomitant]
     Indication: MULTIPLE SCLEROSIS

REACTIONS (3)
  - BLADDER DISORDER [None]
  - CONSTIPATION [None]
  - RENAL FAILURE [None]
